FAERS Safety Report 11442434 (Version 1)
Quarter: 2015Q3

REPORT INFORMATION
  Report Type: Report from Study
  Country: US (occurrence: US)
  Receive Date: 20150901
  Receipt Date: 20150901
  Transmission Date: 20151125
  Serious: Yes (Hospitalization)
  Sender: FDA-Public Use
  Company Number: US-GILEAD-2015-0169488

PATIENT
  Age: 66 Year
  Sex: Male

DRUGS (1)
  1. IDELALISIB [Suspect]
     Active Substance: IDELALISIB
     Indication: CHRONIC LYMPHOCYTIC LEUKAEMIA
     Dosage: 150 MG, BID
     Route: 048
     Dates: start: 20150818, end: 20150825

REACTIONS (7)
  - Oedema peripheral [Unknown]
  - Pyrexia [Unknown]
  - Generalised oedema [Unknown]
  - Asthenia [Unknown]
  - Malaise [Unknown]
  - Cough [Unknown]
  - Abasia [Unknown]
